FAERS Safety Report 4873825-6 (Version None)
Quarter: 2006Q1

REPORT INFORMATION
  Report Type: 
  Country: None (occurrence: None)
  Receive Date: 20060104
  Receipt Date: 20051229
  Transmission Date: 20060701
  Serious: Yes (Hospitalization)
  Sender: FDA-Public Use
  Company Number: 2005AL005056

PATIENT
  Age: 70 Year
  Sex: Female

DRUGS (3)
  1. KADIAN [Suspect]
     Indication: ABDOMINAL PAIN
     Dosage: 30 MG;QD;PO
     Route: 048
     Dates: start: 20051217, end: 20051220
  2. SB-743921 INJECTION [Suspect]
     Indication: PANCREATIC CARCINOMA METASTATIC
     Dosage: IV
     Route: 042
     Dates: start: 20051114
  3. HYDROMORPHONE HYDROCHLORIDE [Suspect]
     Indication: ABDOMINAL PAIN
     Dosage: 14.4 MG;QD
     Dates: start: 20051207, end: 20051220

REACTIONS (6)
  - CONFUSIONAL STATE [None]
  - DIFFICULTY IN WALKING [None]
  - GAIT DISTURBANCE [None]
  - IMPLANT SITE THROMBOSIS [None]
  - PORTAL VEIN THROMBOSIS [None]
  - SOMNOLENCE [None]
